FAERS Safety Report 7960319-4 (Version None)
Quarter: 2011Q4

REPORT INFORMATION
  Report Type: 
  Country: None (occurrence: None)
  Receive Date: 20111206
  Receipt Date: 20111203
  Transmission Date: 20120403
  Serious: Yes (Death)
  Sender: FDA-Public Use
  Company Number: PHHY2011MX106204

PATIENT
  Age: 64 Year
  Sex: Female

DRUGS (1)
  1. DIOVAN HCT [Suspect]
     Indication: HYPERTENSION
     Dosage: 1 DF, (320/12.5 MG ONE TABLET DAILY)
     Dates: start: 20110901

REACTIONS (1)
  - MULTIPLE MYELOMA [None]
